FAERS Safety Report 10180873 (Version 1)
Quarter: 2014Q2

REPORT INFORMATION
  Report Type: Spontaneous
  Country: US (occurrence: US)
  Receive Date: 20140519
  Receipt Date: 20140519
  Transmission Date: 20141212
  Serious: Yes (Other)
  Sender: FDA-Public Use
  Company Number: US-AMGEN-USASP2014012424

PATIENT
  Age: 80 Year
  Sex: Male

DRUGS (7)
  1. PROLIA [Suspect]
     Indication: OSTEOPOROSIS
     Dosage: UNK
     Route: 065
     Dates: start: 201208
  2. LOTREL [Concomitant]
  3. DICLOFENAC [Concomitant]
  4. HYDROCHLOROTHIAZIDE [Concomitant]
  5. MULTIVITAMIN                       /00097801/ [Concomitant]
  6. FISH OIL OMEGA 3 [Concomitant]
  7. ALLEGRA [Concomitant]
     Indication: SINUS DISORDER
     Dosage: UNK UNK, QD

REACTIONS (5)
  - Sciatica [Recovering/Resolving]
  - Back pain [Recovering/Resolving]
  - Muscle disorder [Unknown]
  - Balance disorder [Unknown]
  - Bone density abnormal [Unknown]
